FAERS Safety Report 8578430-6 (Version None)
Quarter: 2012Q3

REPORT INFORMATION
  Report Type: 
  Country: None (occurrence: None)
  Receive Date: 20120808
  Receipt Date: 20120725
  Transmission Date: 20120928
  Serious: Yes (Other)
  Sender: FDA-Public Use
  Company Number: GB-RANBAXY-2012RR-57668

PATIENT
  Age: 36 Year
  Sex: Female

DRUGS (7)
  1. GLICLAZIDE [Suspect]
     Indication: TYPE 2 DIABETES MELLITUS
     Dosage: UNK
     Route: 048
  2. INSULIN [Suspect]
     Indication: TYPE 2 DIABETES MELLITUS
     Route: 065
  3. INSULIN [Suspect]
  4. EXENATIDE [Suspect]
     Dosage: 10 A?G, BID
     Route: 065
  5. ROSIGLITAZONE [Suspect]
     Indication: TYPE 2 DIABETES MELLITUS
     Route: 048
  6. EXENATIDE [Suspect]
     Indication: TYPE 2 DIABETES MELLITUS
     Dosage: 5 A?G, BID
     Route: 065
  7. METFORMIN HYDROCHLORIDE [Suspect]
     Indication: TYPE 2 DIABETES MELLITUS
     Route: 048

REACTIONS (5)
  - CEREBROVASCULAR ACCIDENT [None]
  - METABOLIC DISORDER [None]
  - CONDITION AGGRAVATED [None]
  - HYPERTENSION [None]
  - NAUSEA [None]
